FAERS Safety Report 8796331 (Version 1)
Quarter: 2012Q4

REPORT INFORMATION
  Report Type: 
  Country: AR (occurrence: AR)
  Receive Date: 20120919
  Receipt Date: 20120919
  Transmission Date: 20130627
  Serious: Yes (Other)
  Sender: FDA-Public Use
  Company Number: AR-PFIZER INC-2012229294

PATIENT
  Age: 51 Year
  Sex: Female

DRUGS (9)
  1. SOMAVERT [Suspect]
     Indication: ACROMEGALY
     Dosage: 10 mg, UNK
     Route: 058
     Dates: start: 201112
  2. SOMAVERT [Suspect]
     Dosage: 15 mg, 5 times a week
     Route: 058
     Dates: start: 201206
  3. LEVOTHYROXINE [Concomitant]
     Dosage: UNK
  4. INSULIN [Concomitant]
     Dosage: UNK
  5. LOSARTAN [Concomitant]
     Dosage: UNK
  6. METFORMIN [Concomitant]
     Dosage: UNK
  7. HYDROCORTISONE [Concomitant]
     Dosage: UNK
  8. OMEPRAZOLE [Concomitant]
     Dosage: UNK
  9. PREGABALIN [Concomitant]
     Dosage: UNK

REACTIONS (2)
  - Pituitary tumour [Not Recovered/Not Resolved]
  - Disease progression [Not Recovered/Not Resolved]
